FAERS Safety Report 11575353 (Version 2)
Quarter: 2015Q4

REPORT INFORMATION
  Report Type: Spontaneous
  Country: US (occurrence: US)
  Receive Date: 20150916
  Receipt Date: 20151027
  Transmission Date: 20160304
  Serious: No
  Sender: FDA-Public Use
  Company Number: US-ELI_LILLY_AND_COMPANY-US200911006191

PATIENT
  Age: 86 Year
  Sex: Female

DRUGS (2)
  1. FORTEO [Suspect]
     Active Substance: TERIPARATIDE
     Indication: OSTEOPOROSIS
     Dosage: 20 UG, DAILY (1/D)
     Dates: start: 200908
  2. REMICADE [Concomitant]
     Active Substance: INFLIXIMAB

REACTIONS (9)
  - Ear pain [Unknown]
  - Muscular weakness [Unknown]
  - Pain [Unknown]
  - Body height decreased [Unknown]
  - Pain in extremity [Unknown]
  - Burning sensation [Unknown]
  - Peripheral swelling [Unknown]
  - Swelling [Unknown]
  - Muscle spasms [Unknown]

NARRATIVE: CASE EVENT DATE: 200912
